FAERS Safety Report 4459482-1 (Version None)
Quarter: 2004Q3

REPORT INFORMATION
  Report Type: 
  Country: None (occurrence: None)
  Receive Date: 20040910
  Receipt Date: 20040521
  Transmission Date: 20050211
  Serious: Yes (Hospitalization)
  Sender: FDA-Public Use
  Company Number: 2003182846US

PATIENT
  Age: 53 Year
  Sex: Female

DRUGS (2)
  1. BEXTRA [Suspect]
     Indication: PAIN IN EXTREMITY
     Dosage: 10 MG, QD, ORAL
     Route: 048
     Dates: start: 20031020, end: 20031021
  2. TORADOL [Concomitant]

REACTIONS (4)
  - FAECES DISCOLOURED [None]
  - HAEMATOCHEZIA [None]
  - LOOSE STOOLS [None]
  - STOMACH DISCOMFORT [None]
